FAERS Safety Report 22049219 (Version 1)
Quarter: 2023Q1

REPORT INFORMATION
  Report Type: Spontaneous
  Country: TR (occurrence: TR)
  Receive Date: 20230301
  Receipt Date: 20230301
  Transmission Date: 20230417
  Serious: Yes (Other)
  Sender: FDA-Public Use
  Company Number: TR-ABBVIE-4320267

PATIENT
  Sex: Male

DRUGS (15)
  1. HUMIRA [Suspect]
     Active Substance: ADALIMUMAB
     Indication: Uveitis
     Route: 058
     Dates: start: 2020, end: 2020
  2. Dexamethasone (Dekort) [Concomitant]
     Indication: Product used for unknown indication
  3. Mycophenolate mofetil (Cellcept) [Concomitant]
     Indication: Product used for unknown indication
     Dosage: 500 MILLIGRAM
     Route: 048
  4. Latanoprost (Xalatan) [Concomitant]
     Indication: Product used for unknown indication
     Route: 061
     Dates: start: 20230124
  5. Dorzolamide HCl + Timolol maleate (Tomec) [Concomitant]
     Indication: Product used for unknown indication
     Route: 061
     Dates: start: 20190917
  6. Betamethasone (Celestone) [Concomitant]
     Indication: Product used for unknown indication
  7. Mycophenolate Mofetil (Cellcept) [Concomitant]
     Indication: Product used for unknown indication
     Dosage: 1000 MILLIGRAM
     Route: 048
  8. Acetazolamide (Diazomid) [Concomitant]
     Indication: Product used for unknown indication
     Dosage: UNKNOWN
     Route: 048
     Dates: start: 20230124
  9. OZURDEX [Suspect]
     Active Substance: DEXAMETHASONE
     Indication: Uveitis
     Route: 065
  10. OZURDEX [Suspect]
     Active Substance: DEXAMETHASONE
     Indication: Uveitis
     Dosage: INTRAVITREAL IMPLANT 0.7MG
     Route: 065
     Dates: start: 201906, end: 201906
  11. Prednisolone (Deltacortril) [Concomitant]
     Indication: Product used for unknown indication
     Dosage: 10 MILLIGRAM
     Route: 048
  12. Prednisolone (Deltacortril) [Concomitant]
     Indication: Product used for unknown indication
     Dosage: 5 MILLIGRAM
     Route: 048
  13. Brimonidine tartrate (Alphagan) [Concomitant]
     Indication: Product used for unknown indication
     Dosage: UNKNOWN
     Route: 061
     Dates: start: 20230124
  14. Methylprednisolone (Prednol) [Concomitant]
     Indication: Product used for unknown indication
     Dosage: 80 MG
     Route: 048
  15. Methylprednisolone (Prednol) [Concomitant]
     Indication: Product used for unknown indication
     Dosage: 16 MG
     Route: 048

REACTIONS (12)
  - Vitritis [Unknown]
  - Uveitis [Unknown]
  - Papillitis [Unknown]
  - Off label use [Recovered/Resolved]
  - Conjunctival haemorrhage [Unknown]
  - Cushingoid [Unknown]
  - Vitreous floaters [Unknown]
  - Intraocular pressure increased [Recovering/Resolving]
  - Uveitis [Unknown]
  - Hypotonia [Recovered/Resolved]
  - Chorioretinitis [Unknown]
  - Depressive symptom [Unknown]

NARRATIVE: CASE EVENT DATE: 20200101
